FAERS Safety Report 6164684-2 (Version None)
Quarter: 2009Q2

REPORT INFORMATION
  Report Type: 
  Country: None (occurrence: None)
  Receive Date: 20090423
  Receipt Date: 20090411
  Transmission Date: 20091009
  Serious: Yes (Hospitalization)
  Sender: FDA-Public Use
  Company Number: CN-ROCHE-626909

PATIENT
  Sex: Female
  Weight: 60 kg

DRUGS (1)
  1. PEGASYS [Suspect]
     Indication: HEPATITIS
     Route: 058
     Dates: start: 20080101, end: 20090310

REACTIONS (1)
  - NEPHRITIS [None]
